FAERS Safety Report 14282047 (Version 32)
Quarter: 2024Q2

REPORT INFORMATION
  Report Type: Spontaneous
  Country: FR (occurrence: FR)
  Receive Date: 20171213
  Receipt Date: 20240408
  Transmission Date: 20240716
  Serious: Yes (Life-Threatening, Hospitalization)
  Sender: FDA-Public Use
  Company Number: FR-ROCHE-2031433

PATIENT
  Age: 75 Year
  Sex: Male
  Weight: 88 kg

DRUGS (51)
  1. ALPRAZOLAM [Suspect]
     Active Substance: ALPRAZOLAM
     Indication: Depressive symptom
     Dosage: 0.75 MILLIGRAM, QD
     Route: 048
     Dates: start: 20170728
  2. ALPRAZOLAM [Suspect]
     Active Substance: ALPRAZOLAM
     Dosage: 0.75 MILLIGRAM, QD
     Route: 048
     Dates: start: 20170728
  3. ALPRAZOLAM [Suspect]
     Active Substance: ALPRAZOLAM
     Dosage: 0.25 MILLIGRAM, Q8HR
     Dates: start: 20170728
  4. ALPRAZOLAM [Suspect]
     Active Substance: ALPRAZOLAM
     Dosage: 0.25 MILLIGRAM, Q8HR
     Route: 048
     Dates: start: 20170928
  5. ALPRAZOLAM [Suspect]
     Active Substance: ALPRAZOLAM
     Dosage: 0.25 MILLIGRAM, Q8HR
     Route: 048
     Dates: start: 20170928
  6. AMLODIPINE BESYLATE [Suspect]
     Active Substance: AMLODIPINE BESYLATE
     Indication: Hypertension
     Dosage: 10 MG, 1X/DAY
     Route: 048
     Dates: start: 20170825, end: 20170927
  7. PANTOPRAZOLE [Suspect]
     Active Substance: PANTOPRAZOLE
     Indication: Gastrooesophageal reflux disease
     Dosage: 20 MILLIGRAM, QD
     Route: 048
     Dates: start: 20150101, end: 20171025
  8. PANTOPRAZOLE [Suspect]
     Active Substance: PANTOPRAZOLE
     Dosage: 20 MILLIGRAM, QD
     Route: 048
     Dates: start: 2015, end: 20171025
  9. PANTOPRAZOLE [Suspect]
     Active Substance: PANTOPRAZOLE
     Dosage: 20 MILLIGRAM, QD
     Route: 048
     Dates: start: 20171025
  10. METFORMIN [Suspect]
     Active Substance: METFORMIN HYDROCHLORIDE
     Indication: Diabetes mellitus
     Dosage: 500 MILLIGRAM, Q12H
     Route: 048
     Dates: start: 20170824, end: 20171025
  11. METFORMIN [Suspect]
     Active Substance: METFORMIN HYDROCHLORIDE
     Dosage: 500 MILLIGRAM, QD
     Route: 048
     Dates: start: 20170824
  12. MIRTAZAPINE [Suspect]
     Active Substance: MIRTAZAPINE
     Indication: Depressive symptom
     Dosage: 15 MG, 1X/DAY
     Route: 048
     Dates: start: 20170910
  13. FUROSEMIDE [Suspect]
     Active Substance: FUROSEMIDE
     Indication: Hypertension
     Dosage: 30 MG, 2X/DAY
     Route: 048
     Dates: start: 20170825, end: 20171003
  14. FUROSEMIDE [Suspect]
     Active Substance: FUROSEMIDE
     Dosage: UNK UNK, QD
     Route: 048
     Dates: start: 20170825, end: 20171003
  15. FUROSEMIDE [Suspect]
     Active Substance: FUROSEMIDE
     Dosage: 30 MILLIGRAM, QD
     Route: 048
     Dates: start: 20210625
  16. IRBESARTAN [Suspect]
     Active Substance: IRBESARTAN
     Indication: Hypertension
     Dosage: 300 MG, 1X/DAY
     Route: 048
     Dates: start: 20150101, end: 20171006
  17. IRBESARTAN [Suspect]
     Active Substance: IRBESARTAN
     Dosage: 300 MG, 1X/DAY (BLOOD FRACTION MODIFIER)
     Route: 048
     Dates: start: 2015, end: 20171006
  18. DAFALGAN [Suspect]
     Active Substance: ACETAMINOPHEN
     Indication: Pain
     Dosage: 1000 MG, 3X/DAY
     Route: 048
     Dates: start: 20171009
  19. DAFALGAN [Suspect]
     Active Substance: ACETAMINOPHEN
     Dosage: 3000 MILLIGRAM, QD
     Route: 048
     Dates: start: 20171009
  20. DAFALGAN [Suspect]
     Active Substance: ACETAMINOPHEN
     Dosage: 1000 MG, 1X/DAY
     Route: 048
     Dates: start: 20171009
  21. DAFALGAN [Suspect]
     Active Substance: ACETAMINOPHEN
     Dosage: 3000 MILLIGRAM, QD
     Route: 048
     Dates: start: 20171019
  22. NEFOPAM [Suspect]
     Active Substance: NEFOPAM
     Indication: Pain
     Dosage: 1 DF, 3X/DAY
     Route: 048
  23. NEFOPAM [Suspect]
     Active Substance: NEFOPAM
     Dosage: 3 DF, 3X/DAY
     Route: 048
  24. NEFOPAM [Suspect]
     Active Substance: NEFOPAM
     Dosage: 3 UG, 1X/DAY
     Route: 048
  25. NEFOPAM [Suspect]
     Active Substance: NEFOPAM
     Dosage: 3 DF, 1X/DAY
  26. POTASSIUM CHLORIDE [Suspect]
     Active Substance: POTASSIUM CHLORIDE
     Indication: Hypokalaemia
     Dosage: 3 DF (2-1-0), 2X/DAY
     Route: 048
     Dates: start: 20170824, end: 20171003
  27. POTASSIUM CHLORIDE [Suspect]
     Active Substance: POTASSIUM CHLORIDE
     Dosage: 6 DF, 1X/DAY/QD
     Route: 048
     Dates: start: 20170824, end: 20171003
  28. COLCHICINE [Suspect]
     Active Substance: COLCHICINE
     Indication: Gout
     Dosage: 1 MILLIGRAM, QD
     Route: 048
     Dates: start: 20170914, end: 20170921
  29. COLCHICINE [Suspect]
     Active Substance: COLCHICINE
     Dosage: 1 DOSAGE FORM, QD
     Route: 048
     Dates: start: 20170914, end: 20170921
  30. XARELTO [Suspect]
     Active Substance: RIVAROXABAN
     Indication: Atrial fibrillation
     Dosage: 20 MG, 1X/DAY
     Route: 048
     Dates: start: 20170824, end: 20171025
  31. XARELTO [Suspect]
     Active Substance: RIVAROXABAN
     Dosage: 1 DF, UNK
     Dates: start: 20170824, end: 20171025
  32. XARELTO [Suspect]
     Active Substance: RIVAROXABAN
     Dosage: 1 DF, 1X/DAY
     Dates: start: 20170824, end: 20170825
  33. ESCITALOPRAM OXALATE [Suspect]
     Active Substance: ESCITALOPRAM OXALATE
     Indication: Depressive symptom
     Dosage: 1 DF, 1X/DAY
     Route: 048
     Dates: start: 20170101, end: 20170910
  34. LEVOFLOXACIN [Suspect]
     Active Substance: LEVOFLOXACIN
     Indication: Lung disorder
     Dosage: 500 MG, 1X/DAY
     Route: 048
     Dates: start: 20170905, end: 20170919
  35. LEVOFLOXACIN [Suspect]
     Active Substance: LEVOFLOXACIN
     Dosage: 250 MILLIGRAM, Q12H
     Route: 048
     Dates: start: 20170905, end: 20170919
  36. LEVOFLOXACIN [Suspect]
     Active Substance: LEVOFLOXACIN
     Dosage: 2 DF, 1X/DAY
     Route: 048
     Dates: start: 20170905, end: 20170919
  37. DIAZEPAM [Suspect]
     Active Substance: DIAZEPAM
     Indication: Depressive symptom
     Dosage: 10 MG, 3X/DAY (IF NEEDED)
     Route: 048
     Dates: start: 20170101, end: 20170927
  38. DIAZEPAM [Suspect]
     Active Substance: DIAZEPAM
     Dosage: 30 MG, 1X/DAY/QD
     Route: 048
     Dates: start: 20170101, end: 20170927
  39. BISOPROLOL FUMARATE [Suspect]
     Active Substance: BISOPROLOL FUMARATE
     Indication: Hypertension
     Dosage: 1.25 MG, 1X/DAY
     Route: 048
     Dates: start: 20171006
  40. TERBUTALINE SULFATE [Suspect]
     Active Substance: TERBUTALINE SULFATE
     Indication: Lung disorder
     Dosage: 1 DF, 1X/DAY
     Route: 055
     Dates: start: 20170914, end: 20170921
  41. TERBUTALINE SULFATE [Suspect]
     Active Substance: TERBUTALINE SULFATE
     Dosage: 1 UG
     Route: 055
  42. VALIUM [Suspect]
     Active Substance: DIAZEPAM
     Indication: Depressive symptom
     Dosage: 10 MILLIGRAM, TID
     Route: 048
     Dates: start: 20170101, end: 20170927
  43. VALIUM [Suspect]
     Active Substance: DIAZEPAM
     Dosage: 10 MILLIGRAM, QD
     Route: 048
     Dates: start: 20170101, end: 20170927
  44. VALIUM [Suspect]
     Active Substance: DIAZEPAM
     Dosage: 3 MICROGRAM, QD
     Route: 048
     Dates: start: 20170101, end: 20170927
  45. NEFOPAM HYDROCHLORIDE [Suspect]
     Active Substance: NEFOPAM HYDROCHLORIDE
     Indication: Pain
     Dosage: UNK UNK, TID
     Route: 048
  46. NEFOPAM HYDROCHLORIDE [Suspect]
     Active Substance: NEFOPAM HYDROCHLORIDE
     Dosage: 3 MICROGRAM, QD
     Route: 048
  47. NEFOPAM HYDROCHLORIDE [Suspect]
     Active Substance: NEFOPAM HYDROCHLORIDE
     Dosage: UNK UNK, QD
     Route: 048
  48. NEFOPAM HYDROCHLORIDE [Suspect]
     Active Substance: NEFOPAM HYDROCHLORIDE
     Dosage: UNK UNK, Q8HR
     Route: 048
  49. NEFOPAM HYDROCHLORIDE [Suspect]
     Active Substance: NEFOPAM HYDROCHLORIDE
     Dosage: 3 DOSAGE FORM, QD
     Route: 048
  50. NEFOPAM HYDROCHLORIDE [Suspect]
     Active Substance: NEFOPAM HYDROCHLORIDE
     Dosage: 1 DOSAGE FORM, Q8HR
     Route: 048
  51. NEFOPAM HYDROCHLORIDE [Suspect]
     Active Substance: NEFOPAM HYDROCHLORIDE
     Dosage: 1 DOSAGE FORM, Q8HR
     Route: 048

REACTIONS (1)
  - Agranulocytosis [Recovered/Resolved]

NARRATIVE: CASE EVENT DATE: 20171024
